FAERS Safety Report 16696512 (Version 1)
Quarter: 2019Q3

REPORT INFORMATION
  Report Type: Spontaneous
  Country: GB (occurrence: GB)
  Receive Date: 20190813
  Receipt Date: 20190813
  Transmission Date: 20191004
  Serious: Yes (Other)
  Sender: FDA-Public Use
  Company Number: GB-MYLANLABS-2019M1074751

PATIENT
  Age: 64 Year
  Sex: Female
  Weight: 69 kg

DRUGS (1)
  1. TERBINAFINE. [Suspect]
     Active Substance: TERBINAFINE
     Indication: PRODUCT USED FOR UNKNOWN INDICATION
     Dosage: 250 MILLIGRAM
     Dates: start: 20190201

REACTIONS (4)
  - Muscular weakness [Recovering/Resolving]
  - Restless legs syndrome [Recovering/Resolving]
  - Feeling jittery [Unknown]
  - Pain in extremity [Unknown]

NARRATIVE: CASE EVENT DATE: 20190212
